FAERS Safety Report 6536858-X (Version None)
Quarter: 2010Q1

REPORT INFORMATION
  Report Type: 
  Country: None (occurrence: None)
  Receive Date: 20100113
  Receipt Date: 20100104
  Transmission Date: 20100710
  Serious: Yes (Hospitalization, Disabling, Other)
  Sender: FDA-Public Use
  Company Number: US-BAXTER-2009BH017998

PATIENT
  Age: 49 Year
  Sex: Male
  Weight: 133 kg

DRUGS (22)
  1. HEPARIN SODIUM INJECTION [Suspect]
     Indication: CORONARY ARTERY BYPASS
     Route: 040
     Dates: start: 20071222, end: 20071222
  2. HEPARIN SODIUM INJECTION [Suspect]
     Indication: CATHETERISATION CARDIAC
     Route: 040
     Dates: start: 20071222, end: 20071222
  3. HEPARIN SODIUM INJECTION [Suspect]
     Indication: PROPHYLAXIS
     Route: 040
     Dates: start: 20071222, end: 20071222
  4. HEPARIN SODIUM INJECTION [Suspect]
     Route: 041
     Dates: start: 20071222, end: 20071222
  5. HEPARIN SODIUM INJECTION [Suspect]
     Route: 041
     Dates: start: 20071222, end: 20071222
  6. HEPARIN SODIUM INJECTION [Suspect]
     Route: 041
     Dates: start: 20071222, end: 20071222
  7. HEPARIN SODIUM INJECTION [Suspect]
     Route: 065
     Dates: start: 20071222, end: 20071222
  8. HEPARIN SODIUM INJECTION [Suspect]
     Route: 065
     Dates: start: 20071222, end: 20071222
  9. HEPARIN SODIUM INJECTION [Suspect]
     Route: 065
     Dates: start: 20071222, end: 20071222
  10. HEPARIN SODIUM INJECTION [Suspect]
     Route: 065
     Dates: start: 20071222, end: 20071222
  11. HEPARIN SODIUM INJECTION [Suspect]
     Route: 065
     Dates: start: 20071222, end: 20071222
  12. HEPARIN SODIUM INJECTION [Suspect]
     Route: 065
     Dates: start: 20071222, end: 20071222
  13. HEPARIN SODIUM INJECTION [Suspect]
     Route: 042
     Dates: start: 20071222, end: 20080104
  14. HEPARIN SODIUM INJECTION [Suspect]
     Route: 042
     Dates: start: 20071222, end: 20080104
  15. HEPARIN SODIUM INJECTION [Suspect]
     Route: 042
     Dates: start: 20071222, end: 20080104
  16. HEPARIN SODIUM INJECTION [Suspect]
     Route: 058
     Dates: start: 20071227, end: 20071227
  17. HEPARIN SODIUM INJECTION [Suspect]
     Route: 058
     Dates: start: 20071227, end: 20071227
  18. HEPARIN SODIUM INJECTION [Suspect]
     Route: 058
     Dates: start: 20071227, end: 20071227
  19. HEPARIN SODIUM 1,000 UNITS AND SODIUM CHLORIDE 0.9% [Suspect]
     Indication: DRUG USE FOR UNKNOWN INDICATION
     Route: 041
     Dates: start: 20071230, end: 20080102
  20. ASPIRIN [Concomitant]
     Indication: DRUG USE FOR UNKNOWN INDICATION
     Route: 065
  21. BLOOD PRESSURE MEDICATION [Concomitant]
     Indication: DRUG USE FOR UNKNOWN INDICATION
     Route: 065
  22. MULTI-VITAMINS [Concomitant]
     Indication: DRUG USE FOR UNKNOWN INDICATION
     Route: 065

REACTIONS (8)
  - CARDIOGENIC SHOCK [None]
  - ERYTHEMA [None]
  - HEPARIN-INDUCED THROMBOCYTOPENIA [None]
  - INJECTION SITE RASH [None]
  - MUSCLE INJURY [None]
  - NEUROPATHY PERIPHERAL [None]
  - PULMONARY EMBOLISM [None]
  - RESPIRATORY FAILURE [None]
